FAERS Safety Report 4265597-3 (Version None)
Quarter: 2004Q1

REPORT INFORMATION
  Report Type: 
  Country: None (occurrence: None)
  Receive Date: 20040107
  Receipt Date: 20040107
  Transmission Date: 20041129
  Serious: Yes (Life-Threatening, Hospitalization, Disabling)
  Sender: FDA-Public Use
  Company Number: None

PATIENT
  Sex: Female
  Weight: 104.3273 kg

DRUGS (1)
  1. ZITHROMAX [Suspect]
     Indication: ENDODONTIC PROCEDURE
     Dosage: DAY 1 - 2 DAY 3 THRU ORAL
     Route: 048

REACTIONS (1)
  - THROMBOCYTOPENIC PURPURA [None]
